FAERS Safety Report 8336341-5 (Version None)
Quarter: 2012Q2

REPORT INFORMATION
  Report Type: 
  Country: None (occurrence: None)
  Receive Date: 20120504
  Receipt Date: 20120423
  Transmission Date: 20120825
  Serious: Yes (Other)
  Sender: FDA-Public Use
  Company Number: PHHY2012BR035908

PATIENT
  Sex: Male

DRUGS (3)
  1. CYCLOSPORINE [Suspect]
     Dosage: UNK UKN, UNK
  2. EVEROLIMUS [Suspect]
     Dosage: UNK UKN, UNK
  3. PREDNISONE TAB [Concomitant]
     Dosage: UNK UKN, UNK

REACTIONS (8)
  - INCORRECT DOSE ADMINISTERED [None]
  - SPERMATOZOA PROGRESSIVE MOTILITY DECREASED [None]
  - FEELING HOT [None]
  - DIARRHOEA [None]
  - TACHYCARDIA [None]
  - INFERTILITY MALE [None]
  - MEMORY IMPAIRMENT [None]
  - ABDOMINAL PAIN [None]
